FAERS Safety Report 17264665 (Version 8)
Quarter: 2020Q4

REPORT INFORMATION
  Report Type: Spontaneous
  Country: US (occurrence: US)
  Receive Date: 20200113
  Receipt Date: 20201228
  Transmission Date: 20210113
  Serious: Yes (Other)
  Sender: FDA-Public Use
  Company Number: US-BAYER-2020-002648

PATIENT
  Age: 28 Year
  Sex: Male

DRUGS (5)
  1. KOGENATE FS [Suspect]
     Active Substance: ANTIHEMOPHILIC FACTOR, HUMAN RECOMBINANT
     Indication: FACTOR VIII DEFICIENCY
     Dosage: 1 DOSE DAILY FOR THREE DAYS TO TREAT BLEED RECURRED ON RIGHT ARM TO SHOULDER
     Route: 042
     Dates: start: 20200415, end: 20200417
  2. KOGENATE FS [Suspect]
     Active Substance: ANTIHEMOPHILIC FACTOR, HUMAN RECOMBINANT
     Indication: FACTOR VIII DEFICIENCY
     Dosage: 3000 IU, QOD, SLOW IV PUSH
     Route: 042
     Dates: start: 20180505
  3. KOGENATE FS [Suspect]
     Active Substance: ANTIHEMOPHILIC FACTOR, HUMAN RECOMBINANT
     Indication: FACTOR VIII DEFICIENCY
     Dosage: 2 DOSES FOR BLEED
     Route: 042
  4. KOGENATE FS [Suspect]
     Active Substance: ANTIHEMOPHILIC FACTOR, HUMAN RECOMBINANT
     Indication: HAEMORRHAGE PROPHYLAXIS
     Dosage: 2782 U, QOD
     Route: 042
     Dates: start: 20200215
  5. KOGENATE FS [Suspect]
     Active Substance: ANTIHEMOPHILIC FACTOR, HUMAN RECOMBINANT
     Indication: FACTOR VIII DEFICIENCY
     Dosage: USING DAILY PRPHYLAXIS DOSES TO TREAT RIGHT SHOULDER BLEEDING
     Route: 042
     Dates: start: 20200407, end: 20200410

REACTIONS (10)
  - Haemarthrosis [Recovered/Resolved]
  - Haemarthrosis [Recovered/Resolved]
  - Intentional product use issue [None]
  - Haemorrhage [None]
  - Arthralgia [None]
  - Haemorrhage subcutaneous [Recovered/Resolved]
  - Haemorrhage [None]
  - Haemarthrosis [Recovered/Resolved]
  - Limb injury [None]
  - Haemarthrosis [None]

NARRATIVE: CASE EVENT DATE: 202002
